FAERS Safety Report 9460898 (Version 4)
Quarter: 2013Q4

REPORT INFORMATION
  Report Type: Spontaneous
  Country: US (occurrence: US)
  Receive Date: 20130816
  Receipt Date: 20131007
  Transmission Date: 20140711
  Serious: No
  Sender: FDA-Public Use
  Company Number: US-BIOGENIDEC-2013BI073097

PATIENT
  Age: 41 Year
  Sex: Female

DRUGS (15)
  1. TYSABRI [Suspect]
     Indication: MULTIPLE SCLEROSIS
     Route: 042
     Dates: start: 20071227, end: 20121101
  2. TECFIDERA [Concomitant]
     Indication: MULTIPLE SCLEROSIS
     Dates: start: 201307
  3. CHOLESTYRAMINE [Concomitant]
     Dates: start: 201303
  4. BENADRYL [Concomitant]
     Route: 048
     Dates: start: 20130606
  5. TRICOR [Concomitant]
     Route: 048
     Dates: start: 20130724
  6. ZYRTEC [Concomitant]
  7. MELATONIN [Concomitant]
     Route: 048
     Dates: start: 20130606
  8. FLUTICASONE NASAL SPRAY [Concomitant]
     Route: 045
     Dates: start: 20130606
  9. IBUPROFEN [Concomitant]
     Route: 048
     Dates: start: 20130606
  10. OXYBUTYNIN [Concomitant]
     Route: 048
     Dates: start: 20130606
  11. PERCOCET [Concomitant]
     Dates: start: 20130724
  12. SALINE NASAL SPRAY [Concomitant]
     Route: 045
     Dates: start: 20130606
  13. TOPAMAX [Concomitant]
     Route: 048
     Dates: start: 20130724
  14. ZANAFLEX [Concomitant]
     Route: 048
     Dates: start: 20130606
  15. ZANAFLEX [Concomitant]
     Route: 048
     Dates: start: 20130606

REACTIONS (1)
  - Multiple sclerosis [Not Recovered/Not Resolved]
